FAERS Safety Report 5964477-2 (Version None)
Quarter: 2008Q4

REPORT INFORMATION
  Report Type: 
  Country: None (occurrence: None)
  Receive Date: 20081121
  Receipt Date: 20081121
  Transmission Date: 20090506
  Serious: Yes (Hospitalization, Other)
  Sender: FDA-Public Use
  Company Number: None

PATIENT
  Sex: Female
  Weight: 68.0396 kg

DRUGS (3)
  1. PLAVIX [Suspect]
     Indication: ANGINA PECTORIS
     Dosage: 1 TAB 1 X DAY MOUTH
     Route: 048
     Dates: start: 20070401, end: 20080901
  2. PLAVIX [Suspect]
     Indication: HYPERTENSION
     Dosage: 1 TAB 1 X DAY MOUTH
     Route: 048
     Dates: start: 20070401, end: 20080901
  3. PLAVIX [Suspect]
     Indication: THROMBOSIS PROPHYLAXIS
     Dosage: 1 TAB 1 X DAY MOUTH
     Route: 048
     Dates: start: 20070401, end: 20080901

REACTIONS (7)
  - BREAST PAIN [None]
  - CHEST PAIN [None]
  - CONFUSIONAL STATE [None]
  - DIZZINESS [None]
  - FATIGUE [None]
  - HYPERSOMNIA [None]
  - PAIN IN EXTREMITY [None]
